FAERS Safety Report 8610254-3 (Version None)
Quarter: 2012Q3

REPORT INFORMATION
  Report Type: 
  Country: None (occurrence: None)
  Receive Date: 20120810
  Receipt Date: 20120810
  Transmission Date: 20120928
  Serious: Yes (Hospitalization)
  Sender: FDA-Public Use
  Company Number: None

PATIENT
  Sex: Female
  Weight: 136 kg

DRUGS (2)
  1. FLUDARABINE PHOSPHATE [Suspect]
     Dosage: 325 MG
  2. RITUXIMAB (MCAB C2B8 ANTI CD20, CHIMERIC) [Suspect]
     Dosage: 1940 MG

REACTIONS (8)
  - WHITE BLOOD CELL COUNT DECREASED [None]
  - TREATMENT NONCOMPLIANCE [None]
  - URINARY TRACT INFECTION [None]
  - CONFUSIONAL STATE [None]
  - URTICARIA [None]
  - DRUG HYPERSENSITIVITY [None]
  - FEBRILE NEUTROPENIA [None]
  - DELIRIUM [None]
